FAERS Safety Report 5494417-4 (Version None)
Quarter: 2007Q4

REPORT INFORMATION
  Report Type: 
  Country: None (occurrence: None)
  Receive Date: 20071024
  Receipt Date: 20071019
  Transmission Date: 20080405
  Serious: Yes (Death)
  Sender: FDA-Public Use
  Company Number: FR-BRISTOL-MYERS SQUIBB COMPANY-13951579

PATIENT
  Age: 61 Year
  Sex: Female

DRUGS (6)
  1. TAXOL [Suspect]
     Dates: start: 20071011
  2. CARBOPLATIN [Suspect]
  3. TAXOTERE [Suspect]
  4. AVASTIN [Suspect]
     Route: 042
     Dates: start: 20071011
  5. SOLU-MEDROL [Suspect]
     Route: 042
     Dates: start: 20071011
  6. ARIMIDEX [Suspect]
     Route: 048
     Dates: start: 20071011

REACTIONS (1)
  - HEPATITIS FULMINANT [None]
